FAERS Safety Report 8124847-3 (Version None)
Quarter: 2012Q1

REPORT INFORMATION
  Report Type: 
  Country: None (occurrence: None)
  Receive Date: 20120209
  Receipt Date: 20120125
  Transmission Date: 20120608
  Serious: Yes (Death, Hospitalization)
  Sender: FDA-Public Use
  Company Number: US-MUTUAL PHARMACEUTICAL COMPANY, INC.-CLHC20120008

PATIENT
  Age: 41 Year
  Sex: Female
  Weight: 86 kg

DRUGS (2)
  1. COCAINE [Suspect]
     Route: 048
     Dates: end: 20100101
  2. COLCHICINE [Suspect]
     Route: 048
     Dates: end: 20100101

REACTIONS (28)
  - AGITATION [None]
  - ALANINE AMINOTRANSFERASE INCREASED [None]
  - DRUG ABUSE [None]
  - TROPONIN INCREASED [None]
  - BLOOD ALKALINE PHOSPHATASE INCREASED [None]
  - BLOOD LACTIC ACID DECREASED [None]
  - NAUSEA [None]
  - BLOOD GLUCOSE INCREASED [None]
  - BLOOD POTASSIUM DECREASED [None]
  - BLOOD UREA DECREASED [None]
  - SHOCK [None]
  - BLOOD CREATINE PHOSPHOKINASE INCREASED [None]
  - ELECTROCARDIOGRAM ST SEGMENT ABNORMAL [None]
  - VENTRICULAR DYSFUNCTION [None]
  - INTERNATIONAL NORMALISED RATIO INCREASED [None]
  - ASPARTATE AMINOTRANSFERASE INCREASED [None]
  - BLOOD CREATININE INCREASED [None]
  - HYPOTENSION [None]
  - SOMNOLENCE [None]
  - ABDOMINAL PAIN [None]
  - DIARRHOEA [None]
  - ACCIDENTAL OVERDOSE [None]
  - ARTERIOSPASM CORONARY [None]
  - VOMITING [None]
  - METABOLIC ACIDOSIS [None]
  - TACHYCARDIA [None]
  - RESPIRATORY RATE INCREASED [None]
  - ABDOMINAL DISCOMFORT [None]
